FAERS Safety Report 23183692 (Version 1)
Quarter: 2023Q4

REPORT INFORMATION
  Report Type: Spontaneous
  Country: None (occurrence: RU)
  Receive Date: 20231114
  Receipt Date: 20231114
  Transmission Date: 20240110
  Serious: Yes (Hospitalization)
  Sender: FDA-Public Use
  Company Number: RU-B.Braun Medical Inc.-2148251

PATIENT
  Age: 35 Year
  Sex: Female
  Weight: 68 kg

DRUGS (3)
  1. SODIUM CHLORIDE [Suspect]
     Active Substance: SODIUM CHLORIDE
  2. CEFUROXIME [Suspect]
     Active Substance: CEFUROXIME
  3. FRAGMIN [Concomitant]
     Active Substance: DALTEPARIN SODIUM

REACTIONS (1)
  - Vomiting [None]
